FAERS Safety Report 7097036-1 (Version None)
Quarter: 2010Q4

REPORT INFORMATION
  Report Type: 
  Country: None (occurrence: None)
  Receive Date: 20101111
  Receipt Date: 20101102
  Transmission Date: 20110411
  Serious: Yes (Disabling)
  Sender: FDA-Public Use
  Company Number: GB-TEVA-254468ISR

PATIENT
  Age: 87 Year
  Sex: Male
  Weight: 61.3 kg

DRUGS (1)
  1. TRAMADOL HCL [Suspect]
     Indication: NECK PAIN
     Route: 048
     Dates: start: 20100801, end: 20100901

REACTIONS (5)
  - CONDITION AGGRAVATED [None]
  - GAIT DISTURBANCE [None]
  - IMMOBILE [None]
  - PARKINSON'S DISEASE [None]
  - TREMOR [None]
